FAERS Safety Report 6930383-X (Version None)
Quarter: 2010Q3

REPORT INFORMATION
  Report Type: 
  Country: None (occurrence: None)
  Receive Date: 20100818
  Receipt Date: 20100813
  Transmission Date: 20110219
  Serious: Yes (Hospitalization)
  Sender: FDA-Public Use
  Company Number: BR-ROCHE-718226

PATIENT
  Age: 16 Year
  Sex: Male
  Weight: 63 kg

DRUGS (5)
  1. ROACUTAN [Suspect]
     Indication: ACNE
     Route: 065
  2. ROACUTAN [Interacting]
     Dosage: FORM: CAPSULE
     Route: 065
     Dates: start: 20100525
  3. SEROQUEL [Interacting]
     Indication: DEPRESSION
     Route: 065
  4. DEPAKOTE [Interacting]
     Indication: DEPRESSION
     Route: 065
  5. EXODUS [Interacting]
     Indication: DEPRESSION
     Dosage: FREQUENCY: 2 TABS DAILY
     Route: 065

REACTIONS (5)
  - ACNE [None]
  - DECREASED APPETITE [None]
  - DRUG INTERACTION [None]
  - HYPOGLYCAEMIA [None]
  - HYPOPHAGIA [None]
